FAERS Safety Report 21139162 (Version 1)
Quarter: 2022Q3

REPORT INFORMATION
  Report Type: Spontaneous
  Country: US (occurrence: US)
  Receive Date: 20220727
  Receipt Date: 20220727
  Transmission Date: 20221026
  Serious: Yes (Hospitalization)
  Sender: FDA-Public Use
  Company Number: US-MYLANLABS-2022M1081491

PATIENT
  Age: 66 Year
  Sex: Male

DRUGS (1)
  1. ATORVASTATIN [Suspect]
     Active Substance: ATORVASTATIN
     Indication: Product used for unknown indication
     Dosage: 10 MILLIGRAM
     Route: 065

REACTIONS (4)
  - Necrotising myositis [Recovered/Resolved]
  - Autoimmune myositis [Recovered/Resolved]
  - Anti-neutrophil cytoplasmic antibody positive vasculitis [Recovered/Resolved]
  - Renal injury [Recovered/Resolved]
